FAERS Safety Report 25633471 (Version 1)
Quarter: 2025Q3

REPORT INFORMATION
  Report Type: Spontaneous
  Country: GB (occurrence: GB)
  Receive Date: 20250801
  Receipt Date: 20250801
  Transmission Date: 20251021
  Serious: Yes (Hospitalization, Other)
  Sender: SANOFI AVENTIS
  Company Number: None

PATIENT
  Age: 86 Year
  Sex: Male

DRUGS (1)
  1. DUPILUMAB [Suspect]
     Active Substance: DUPILUMAB
     Indication: Eczema
     Route: 065
     Dates: start: 20241201, end: 20250715

REACTIONS (4)
  - Respiratory disorder [Unknown]
  - Ocular discomfort [Recovered/Resolved with Sequelae]
  - Eye disorder [Unknown]
  - Herpes simplex [Unknown]

NARRATIVE: CASE EVENT DATE: 20250101
